FAERS Safety Report 7711503-6 (Version None)
Quarter: 2011Q3

REPORT INFORMATION
  Report Type: 
  Country: None (occurrence: None)
  Receive Date: 20110826
  Receipt Date: 20110822
  Transmission Date: 20111222
  Serious: Yes (Other)
  Sender: FDA-Public Use
  Company Number: GB-ABBOTT-11P-167-0837059-00

PATIENT
  Sex: Male
  Weight: 77.3 kg

DRUGS (1)
  1. HUMIRA [Suspect]
     Indication: ANKYLOSING SPONDYLITIS
     Route: 058
     Dates: start: 20090922, end: 20110706

REACTIONS (2)
  - MELANOCYTIC NAEVUS [None]
  - MALIGNANT MELANOMA [None]
